FAERS Safety Report 5788446-0 (Version None)
Quarter: 2008Q2

REPORT INFORMATION
  Report Type: 
  Country: None (occurrence: None)
  Receive Date: 20080623
  Receipt Date: 20080611
  Transmission Date: 20081010
  Serious: Yes (Life-Threatening, Hospitalization)
  Sender: FDA-Public Use
  Company Number: MC200800266

PATIENT
  Age: 70 Year
  Sex: Female
  Weight: 110 kg

DRUGS (2)
  1. ANGIOMAX [Suspect]
     Indication: PERCUTANEOUS CORONARY INTERVENTION
     Dosage: 0.75 MG/KG, BOLUS, INTRAVENOUS; 1.75 MG/KG, HR, INTRAVENOUS
     Route: 042
     Dates: start: 20080606, end: 20080606
  2. ANGIOMAX [Suspect]
     Indication: PERCUTANEOUS CORONARY INTERVENTION
     Dosage: 0.75 MG/KG, BOLUS, INTRAVENOUS; 1.75 MG/KG, HR, INTRAVENOUS
     Route: 042
     Dates: start: 20080606, end: 20080606

REACTIONS (5)
  - BRADYCARDIA [None]
  - CARDIAC ARREST [None]
  - COAGULATION TIME ABNORMAL [None]
  - MYOCARDIAL INFARCTION [None]
  - THROMBOSIS IN DEVICE [None]
